FAERS Safety Report 14405885 (Version 1)
Quarter: 2018Q1

REPORT INFORMATION
  Report Type: Spontaneous
  Country: RU (occurrence: RU)
  Receive Date: 20180118
  Receipt Date: 20180118
  Transmission Date: 20180509
  Serious: Yes (Hospitalization)
  Sender: FDA-Public Use
  Company Number: RU-ASTRAZENECA-2018SE05973

PATIENT
  Age: 70 Year
  Sex: Female
  Weight: 80 kg

DRUGS (10)
  1. PRESTARIUM [Concomitant]
     Active Substance: PERINDOPRIL
     Dates: start: 201711
  2. THROMBO ASS [Concomitant]
     Active Substance: ASPIRIN
     Dates: start: 2012
  3. TRICOR [Concomitant]
     Active Substance: FENOFIBRATE
  4. PLAVIX [Concomitant]
     Active Substance: CLOPIDOGREL BISULFATE
     Indication: STENT PLACEMENT
     Dates: start: 201711
  5. CORAXAN (IVABRADINE HYDROCHLORIDE) [Concomitant]
     Active Substance: IVABRADINE HYDROCHLORIDE
     Dosage: 7.5 MG
     Dates: start: 2008, end: 201710
  6. GALVUS MET [Concomitant]
     Active Substance: METFORMIN HYDROCHLORIDE\VILDAGLIPTIN
     Dates: start: 2008
  7. FORXIGA [Suspect]
     Active Substance: DAPAGLIFLOZIN
     Indication: TYPE 2 DIABETES MELLITUS
     Route: 048
  8. CORONAL [Concomitant]
     Dates: end: 201710
  9. NEBILET [Concomitant]
     Active Substance: NEBIVOLOL
     Dates: start: 201711
  10. GLUCOPHAGE [Concomitant]
     Active Substance: METFORMIN HYDROCHLORIDE
     Dates: start: 201711

REACTIONS (3)
  - Bradycardia [Recovered/Resolved]
  - Blood pressure decreased [Recovered/Resolved]
  - Coronary artery occlusion [Recovering/Resolving]

NARRATIVE: CASE EVENT DATE: 201709
